FAERS Safety Report 15593632 (Version 1)
Quarter: 2018Q4

REPORT INFORMATION
  Report Type: Other
  Country: DK (occurrence: DK)
  Receive Date: 20181107
  Receipt Date: 20181107
  Transmission Date: 20190205
  Serious: Yes (Other)
  Sender: FDA-Public Use
  Company Number: DK-CELLTRION INC.-2018DK023503

PATIENT

DRUGS (10)
  1. PROPRANOLOL [Concomitant]
     Active Substance: PROPRANOLOL HYDROCHLORIDE
     Indication: TREMOR
     Dosage: 40 MG, DAILY, STYRKE: 40 MG
     Route: 048
     Dates: start: 20170519
  2. REMSIMA [Suspect]
     Active Substance: INFLIXIMAB
     Dosage: 400 MG, 6 WEEKS
     Route: 042
     Dates: start: 20180906, end: 20180906
  3. MELATONIN [Concomitant]
     Active Substance: MELATONIN
     Indication: INSOMNIA
     Dosage: 2 MG, DAILY
     Route: 048
     Dates: start: 20170503
  4. PARACETAMOL [Concomitant]
     Active Substance: ACETAMINOPHEN
     Indication: PAIN
     Dosage: 4000 MG, DAILY, STYRKE: 500 MG
     Route: 048
     Dates: start: 20161118
  5. PANTOPRAZOLE SODIUM SESQUIHYDRATE [Concomitant]
     Active Substance: PANTOPRAZOLE SODIUM
     Indication: GASTRIC ULCER
     Dosage: 40 MG, AS NECESSARY
     Route: 048
     Dates: start: 20161118, end: 20180822
  6. DOMPERIDONE [Concomitant]
     Active Substance: DOMPERIDONE
     Indication: NAUSEA
     Dosage: 30 MG, DAILY
     Route: 048
     Dates: start: 20171219, end: 201810
  7. REMSIMA [Suspect]
     Active Substance: INFLIXIMAB
     Indication: ANKYLOSING SPONDYLITIS
     Dosage: 400 MG, 6 WEEKS
     Route: 042
     Dates: start: 20160316, end: 20160316
  8. PAROXETINE. [Concomitant]
     Active Substance: PAROXETINE
     Indication: OBSESSIVE-COMPULSIVE DISORDER
     Dosage: 4 MG, DAILY
     Route: 048
     Dates: start: 20160816
  9. GABAPENTIN. [Concomitant]
     Active Substance: GABAPENTIN
     Indication: NEURALGIA
     Dosage: 900 MG, DAILY, STYRE: 300 MG
     Route: 048
     Dates: start: 20170728, end: 20180420
  10. KLORZOXAZON [Concomitant]
     Active Substance: CHLORZOXAZONE
     Indication: MYALGIA
     Dosage: 1500 MG, DAILY, STYRKE: 250 MG
     Route: 048
     Dates: start: 20180406, end: 20180420

REACTIONS (13)
  - Fatigue [Not Recovered/Not Resolved]
  - Weight decreased [Unknown]
  - Sensorimotor disorder [Not Recovered/Not Resolved]
  - Balance disorder [Not Recovered/Not Resolved]
  - Nocturia [Not Recovered/Not Resolved]
  - Demyelination [Not Recovered/Not Resolved]
  - Dizziness [Not Recovered/Not Resolved]
  - Pyrexia [Unknown]
  - Sensory disturbance [Not Recovered/Not Resolved]
  - Hypoaesthesia [Not Recovered/Not Resolved]
  - Muscular weakness [Not Recovered/Not Resolved]
  - Pollakiuria [Not Recovered/Not Resolved]
  - Paraesthesia [Not Recovered/Not Resolved]

NARRATIVE: CASE EVENT DATE: 2016
